FAERS Safety Report 18375331 (Version 1)
Quarter: 2020Q4

REPORT INFORMATION
  Report Type: Spontaneous
  Country: GR (occurrence: GR)
  Receive Date: 20201013
  Receipt Date: 20201013
  Transmission Date: 20210114
  Serious: Yes (Disabling)
  Sender: FDA-Public Use
  Company Number: GR-ROCHE-2694714

PATIENT
  Age: 73 Year
  Sex: Male

DRUGS (12)
  1. MABTHERA [Suspect]
     Active Substance: RITUXIMAB
     Indication: VASCULITIS
     Route: 042
     Dates: start: 20191227
  2. MABTHERA [Suspect]
     Active Substance: RITUXIMAB
     Route: 042
     Dates: start: 20191212
  3. PLAVIX [Concomitant]
     Active Substance: CLOPIDOGREL BISULFATE
     Route: 048
  4. SEROPRAM [Concomitant]
  5. CLEXANE [Concomitant]
     Active Substance: ENOXAPARIN SODIUM
     Route: 058
  6. CALCIORAL D3 [Concomitant]
  7. CRESTOR [Concomitant]
     Active Substance: ROSUVASTATIN CALCIUM
  8. GLUCOFREE [Concomitant]
  9. SIRODROL [Concomitant]
     Route: 048
  10. LANTUS [Concomitant]
     Active Substance: INSULIN GLARGINE
     Route: 058
  11. TAMSOL [Concomitant]
  12. ACTRAPID [Concomitant]
     Active Substance: INSULIN HUMAN

REACTIONS (1)
  - Ischaemic cerebral infarction [Recovering/Resolving]
